FAERS Safety Report 16754252 (Version 4)
Quarter: 2022Q2

REPORT INFORMATION
  Report Type: Report from Study
  Country: None (occurrence: US)
  Receive Date: 20190829
  Receipt Date: 20220414
  Transmission Date: 20220720
  Serious: Yes (Death, Other)
  Sender: FDA-Public Use
  Company Number: US-AKCEA THERAPEUTICS-2019IS001680

PATIENT
  Age: 71 Year
  Sex: Male

DRUGS (2)
  1. TEGSEDI [Suspect]
     Active Substance: INOTERSEN SODIUM
     Indication: Cardiac amyloidosis
  2. DEVICE [Suspect]
     Active Substance: DEVICE

REACTIONS (3)
  - Glomerulonephritis [Fatal]
  - Proteinuria [Unknown]
  - Off label use [Unknown]

NARRATIVE: CASE EVENT DATE: 20181201
